FAERS Safety Report 16798553 (Version 2)
Quarter: 2019Q4

REPORT INFORMATION
  Report Type: Spontaneous
  Country: JP (occurrence: JP)
  Receive Date: 20190912
  Receipt Date: 20191031
  Transmission Date: 20200122
  Serious: Yes (Hospitalization)
  Sender: FDA-Public Use
  Company Number: JP-JNJFOC-20190901385

PATIENT
  Age: 72 Year
  Sex: Male

DRUGS (11)
  1. ERLEADA [Suspect]
     Active Substance: APALUTAMIDE
     Route: 048
     Dates: start: 20190624, end: 20190827
  2. ESTRACYT [Suspect]
     Active Substance: ESTRAMUSTINE
     Indication: PRODUCT USED FOR UNKNOWN INDICATION
     Route: 048
     Dates: start: 201407, end: 20190827
  3. HOCHUEKKITO                        /07973001/ [Suspect]
     Active Substance: HERBALS
     Indication: PRODUCT USED FOR UNKNOWN INDICATION
     Route: 048
     Dates: start: 20190729, end: 20190827
  4. DECADRON [Concomitant]
     Active Substance: DEXAMETHASONE
     Route: 048
     Dates: start: 20160404
  5. DECADRON [Concomitant]
     Active Substance: DEXAMETHASONE
     Route: 048
     Dates: start: 20170406, end: 20190827
  6. ERLEADA [Suspect]
     Active Substance: APALUTAMIDE
     Indication: PROSTATE CANCER
     Route: 048
     Dates: start: 201908, end: 201908
  7. CANDESARTAN                        /01349502/ [Concomitant]
     Active Substance: CANDESARTAN
     Route: 048
     Dates: start: 20190827
  8. BETANIS [Concomitant]
     Active Substance: MIRABEGRON
     Route: 048
  9. GONAX [Concomitant]
     Active Substance: DEGARELIX
     Route: 058
     Dates: start: 20190527, end: 20190624
  10. LANSOPRAZOLE. [Concomitant]
     Active Substance: LANSOPRAZOLE
     Route: 048
     Dates: start: 20160419
  11. NAFTOPIDIL [Concomitant]
     Active Substance: NAFTOPIDIL
     Route: 048

REACTIONS (1)
  - Interstitial lung disease [Recovering/Resolving]

NARRATIVE: CASE EVENT DATE: 20190827
